FAERS Safety Report 22646539 (Version 4)
Quarter: 2024Q2

REPORT INFORMATION
  Report Type: Spontaneous
  Country: US (occurrence: US)
  Receive Date: 20230627
  Receipt Date: 20240415
  Transmission Date: 20240716
  Serious: No
  Sender: FDA-Public Use
  Company Number: US-PFIZER INC-PV202300107511

PATIENT
  Age: 74 Year
  Sex: Female
  Weight: 56.689 kg

DRUGS (3)
  1. IBRANCE [Suspect]
     Active Substance: PALBOCICLIB
     Indication: Breast cancer metastatic
     Dosage: 100 MG, DAILY
  2. IBRANCE [Suspect]
     Active Substance: PALBOCICLIB
     Dosage: 100 MG EVERY DAY FOR 21 DAYS, THEN 7 DAYS OFF
     Dates: start: 202008
  3. LETROZOLE [Concomitant]
     Active Substance: LETROZOLE
     Dosage: UNK
     Dates: start: 2020

REACTIONS (2)
  - Neoplasm progression [Unknown]
  - Product dispensing error [Unknown]
